FAERS Safety Report 7650581-X (Version None)
Quarter: 2011Q3

REPORT INFORMATION
  Report Type: 
  Country: None (occurrence: None)
  Receive Date: 20110802
  Receipt Date: 20110726
  Transmission Date: 20111222
  Serious: Yes (Death, Hospitalization)
  Sender: FDA-Public Use
  Company Number: DE-SANOFI-AVENTIS-2011SA048295

PATIENT
  Age: 48 Year
  Sex: Female
  Weight: 71 kg

DRUGS (11)
  1. SUNITINIB MALATE [Suspect]
     Indication: BREAST CANCER
     Route: 048
     Dates: start: 20080229, end: 20080322
  2. LORAZEPAM [Concomitant]
     Dates: start: 20080220, end: 20080318
  3. CAPECITABINE [Suspect]
     Indication: BREAST CANCER
     Route: 048
     Dates: start: 20080229, end: 20080313
  4. LOVENOX [Suspect]
     Route: 058
     Dates: start: 20080220, end: 20080319
  5. TRYASOL [Concomitant]
     Dates: start: 20080319, end: 20080415
  6. PHENPROCOUMON [Concomitant]
     Dates: start: 20080126, end: 20080220
  7. LACTULOSE [Concomitant]
     Dates: start: 20080310, end: 20080415
  8. CIPROFLOXACIN [Concomitant]
     Dates: start: 20080319, end: 20080415
  9. PANTOPRAZOLE SODIUM [Concomitant]
     Dates: start: 20080319, end: 20080415
  10. FENTANYL [Concomitant]
     Dates: start: 20080319, end: 20080415
  11. METAMIZOLE [Concomitant]
     Dates: start: 20080319, end: 20080415

REACTIONS (3)
  - DISEASE PROGRESSION [None]
  - HAEMOPTYSIS [None]
  - LEUKOPENIA [None]
